FAERS Safety Report 25493908 (Version 1)
Quarter: 2025Q2

REPORT INFORMATION
  Report Type: Spontaneous
  Country: US (occurrence: US)
  Receive Date: 20250630
  Receipt Date: 20250630
  Transmission Date: 20250716
  Serious: No
  Sender: MYLAN
  Company Number: US-MYLANLABS-2025M1053601

PATIENT
  Sex: Female

DRUGS (4)
  1. NEURONTIN [Suspect]
     Active Substance: GABAPENTIN
     Indication: Product used for unknown indication
  2. NEURONTIN [Suspect]
     Active Substance: GABAPENTIN
     Route: 065
  3. NEURONTIN [Suspect]
     Active Substance: GABAPENTIN
     Route: 065
  4. NEURONTIN [Suspect]
     Active Substance: GABAPENTIN

REACTIONS (1)
  - Urticaria [Unknown]
